FAERS Safety Report 9067636 (Version 3)
Quarter: 2013Q1

REPORT INFORMATION
  Report Type: Spontaneous
  Country: CA (occurrence: CA)
  Receive Date: 20130206
  Receipt Date: 20130312
  Transmission Date: 20140127
  Serious: Yes (Hospitalization, Other)
  Sender: FDA-Public Use
  Company Number: CA-PFIZER INC-2013047293

PATIENT
  Age: 84 Year
  Sex: Female

DRUGS (6)
  1. LYRICA [Suspect]
     Indication: PAIN
     Dosage: 75 MG, 2X/DAY
     Route: 048
     Dates: start: 201212, end: 201212
  2. TYLENOL W/CODEINE NO. 4 [Concomitant]
     Indication: PAIN
     Dosage: UNK
  3. HYDROCHLOROTHIAZIDE [Concomitant]
     Indication: BLOOD PRESSURE
     Dosage: 25 UNK, UNK
  4. AMLODIPINE [Concomitant]
     Indication: BLOOD PRESSURE
     Dosage: 5 MG, UNK
  5. COVERSYL [Concomitant]
     Indication: BLOOD PRESSURE
     Dosage: 4 MG, UNK
  6. ASACOL [Concomitant]
     Indication: COLITIS
     Dosage: 800 MG, UNK

REACTIONS (2)
  - Haemorrhage [Recovered/Resolved]
  - Fatigue [Recovered/Resolved]
